FAERS Safety Report 8825881 (Version 1)
Quarter: 2012Q4

REPORT INFORMATION
  Report Type: 
  Country: FI (occurrence: FI)
  Receive Date: 20121005
  Receipt Date: 20121005
  Transmission Date: 20130627
  Serious: Yes (Hospitalization, Other)
  Sender: FDA-Public Use
  Company Number: FI-BRISTOL-MYERS SQUIBB COMPANY-16941239

PATIENT
  Age: 48 Year

DRUGS (8)
  1. ORENCIA [Suspect]
     Indication: RHEUMATOID ARTHRITIS
     Dosage: infusion dates:11Apr,26Apr,17May,9Jun11
     Route: 042
     Dates: start: 20110411
  2. PREDNISONE [Concomitant]
     Dosage: 1 DF: 7.5-10mg/day
  3. IBANDRONATE [Concomitant]
  4. CALCIUM + VITAMIN D [Concomitant]
     Dosage: calcium 500mg + Vitamin D 20mg 1x2
  5. ESOMEPRAZOLE [Concomitant]
     Dosage: 20mgx1
  6. ATACAND [Concomitant]
     Dosage: 16mgX2
  7. KETOPROFEN [Concomitant]
     Dosage: 100mg x3
  8. TRAMADOL [Concomitant]
     Dosage: 100mgx2 as needed

REACTIONS (6)
  - Escherichia sepsis [Unknown]
  - Clostridium difficile colitis [Unknown]
  - Atonic urinary bladder [Unknown]
  - Osteomyelitis [Unknown]
  - Urinary tract infection [Unknown]
  - Infection [Unknown]
